FAERS Safety Report 6673067-8 (Version None)
Quarter: 2010Q2

REPORT INFORMATION
  Report Type: 
  Country: None (occurrence: None)
  Receive Date: 20100408
  Receipt Date: 20100402
  Transmission Date: 20101027
  Serious: Yes (Death, Hospitalization)
  Sender: FDA-Public Use
  Company Number: PHEH2010US02479

PATIENT
  Sex: Female
  Weight: 57 kg

DRUGS (4)
  1. EXJADE [Suspect]
     Indication: BLOOD DISORDER
     Dosage: 1000 MG DAILY
     Route: 048
     Dates: start: 20070712, end: 20100113
  2. EXJADE [Suspect]
     Indication: IRON OVERLOAD
  3. METOPROLOL TARTRATE [Concomitant]
     Dosage: 50 MG
     Route: 048
     Dates: start: 20090101
  4. FOLIC ACID [Concomitant]
     Indication: ANAEMIA
     Dosage: 1 MG
     Route: 048

REACTIONS (5)
  - ABORTION SPONTANEOUS [None]
  - CEREBROVASCULAR ACCIDENT [None]
  - CONFUSIONAL STATE [None]
  - DRUG EXPOSURE DURING PREGNANCY [None]
  - HAEMORRHAGE [None]
